FAERS Safety Report 7744330-4 (Version None)
Quarter: 2011Q3

REPORT INFORMATION
  Report Type: 
  Country: None (occurrence: None)
  Receive Date: 20110912
  Receipt Date: 20110902
  Transmission Date: 20111222
  Serious: Yes (Hospitalization)
  Sender: FDA-Public Use
  Company Number: US-US-EMD SERONO, INC.-7080739

PATIENT
  Sex: Male

DRUGS (1)
  1. REBIF [Suspect]
     Indication: PRODUCT USED FOR UNKNOWN INDICATION
     Route: 058
     Dates: start: 20091201

REACTIONS (6)
  - SENSORY DISTURBANCE [None]
  - ANXIETY [None]
  - VOMITING [None]
  - TREMOR [None]
  - HEADACHE [None]
  - MYALGIA [None]
